FAERS Safety Report 24950637 (Version 1)
Quarter: 2025Q1

REPORT INFORMATION
  Report Type: Report from Study
  Country: PT (occurrence: PT)
  Receive Date: 20250210
  Receipt Date: 20250210
  Transmission Date: 20250409
  Serious: Yes (Other)
  Sender: NOVARTIS
  Company Number: PT-002147023-NVSC2023PT155912

PATIENT
  Age: 66 Year
  Sex: Female

DRUGS (2)
  1. MAYZENT [Suspect]
     Active Substance: SIPONIMOD
     Indication: Multiple sclerosis
     Dosage: 2 MG, QD
     Route: 048
     Dates: start: 20230501
  2. ZOLPIDEM [Concomitant]
     Active Substance: ZOLPIDEM TARTRATE
     Indication: Product used for unknown indication
     Route: 065

REACTIONS (9)
  - Basal cell carcinoma [Unknown]
  - Ocular hyperaemia [Recovering/Resolving]
  - Headache [Not Recovered/Not Resolved]
  - Conjunctivitis [Unknown]
  - Pruritus [Recovered/Resolved]
  - Skin striae [Not Recovered/Not Resolved]
  - Rash macular [Recovering/Resolving]
  - Feeling hot [Not Recovered/Not Resolved]
  - Skin exfoliation [Unknown]

NARRATIVE: CASE EVENT DATE: 20230101
